FAERS Safety Report 10091607 (Version 1)
Quarter: 2014Q2

REPORT INFORMATION
  Report Type: Spontaneous
  Country: US (occurrence: US)
  Receive Date: 20140421
  Receipt Date: 20140421
  Transmission Date: 20141212
  Serious: No
  Sender: FDA-Public Use
  Company Number: US-GILEAD-2014-0100343

PATIENT
  Sex: Female

DRUGS (13)
  1. LETAIRIS [Suspect]
     Indication: PRODUCT USED FOR UNKNOWN INDICATION
     Dosage: 10 MG, QD
     Route: 065
     Dates: start: 20120223, end: 20140404
  2. GLIPIZIDE [Concomitant]
  3. DILTIAZEM [Concomitant]
  4. VITAMIN D NOS [Concomitant]
  5. ASPIRIN [Concomitant]
  6. VICODIN [Concomitant]
  7. MECLIZINE                          /00072801/ [Concomitant]
  8. TRAZODONE [Concomitant]
  9. METOLAZONE [Concomitant]
  10. WELLBUTRIN [Concomitant]
  11. KLOR CON [Concomitant]
  12. CELEXA                             /00582602/ [Concomitant]
  13. LASIX                              /00032601/ [Concomitant]

REACTIONS (2)
  - Nasopharyngitis [Not Recovered/Not Resolved]
  - Sinusitis [Not Recovered/Not Resolved]
